FAERS Safety Report 5070406-9 (Version None)
Quarter: 2006Q3

REPORT INFORMATION
  Report Type: 
  Country: None (occurrence: None)
  Receive Date: 20060714
  Receipt Date: 20060412
  Transmission Date: 20061208
  Serious: No
  Sender: FDA-Public Use
  Company Number: 2006SP001684

PATIENT
  Age: 41 Year
  Sex: Female
  Weight: 53.5244 kg

DRUGS (11)
  1. LUNESTA [Suspect]
     Indication: INSOMNIA
     Dosage: SEE IMAGE
     Route: 048
     Dates: start: 20060406, end: 20060406
  2. LUNESTA [Suspect]
     Indication: INSOMNIA
     Dosage: SEE IMAGE
     Route: 048
     Dates: start: 20060412
  3. LUNESTA [Suspect]
  4. DIPHENHYDRAMINE [Concomitant]
  5. SEROQUEL [Concomitant]
  6. KLONOPIN [Concomitant]
  7. LORTAB [Concomitant]
  8. PROMETHAZINE [Concomitant]
  9. LIBRAX [Concomitant]
  10. LOMOTIL [Concomitant]
  11. FLEXERIL [Concomitant]

REACTIONS (2)
  - DRY THROAT [None]
  - DYSGEUSIA [None]
